FAERS Safety Report 6254270-8 (Version None)
Quarter: 2009Q3

REPORT INFORMATION
  Report Type: 
  Country: None (occurrence: None)
  Receive Date: 20090702
  Receipt Date: 20090622
  Transmission Date: 20100115
  Serious: Yes (Death, Life-Threatening)
  Sender: FDA-Public Use
  Company Number: JP-JNJFOC-20090606527

PATIENT
  Sex: Male

DRUGS (15)
  1. REMICADE [Suspect]
     Dosage: 5TH DOSE
     Route: 042
  2. REMICADE [Suspect]
     Dosage: 3 INFUSIONS ON UNSPECIFIED DATES
     Route: 042
  3. REMICADE [Suspect]
     Indication: RHEUMATOID ARTHRITIS
     Route: 042
  4. RHEUMATREX [Suspect]
     Indication: RHEUMATOID ARTHRITIS
     Route: 048
  5. PREDNISOLONE [Suspect]
     Indication: RHEUMATOID ARTHRITIS
     Route: 048
  6. BAKTAR [Suspect]
     Indication: DRUG USE FOR UNKNOWN INDICATION
     Route: 048
  7. SUNRYTHM [Concomitant]
     Indication: ATRIAL FIBRILLATION
     Route: 048
  8. TENORMIN [Concomitant]
     Indication: HYPERTENSION
     Route: 048
  9. ATELEC [Concomitant]
     Indication: HYPERTENSION
     Route: 048
  10. WARFARIN [Concomitant]
     Indication: ATRIAL FIBRILLATION
     Route: 048
  11. ISCOTIN [Concomitant]
     Indication: ANTIBIOTIC PROPHYLAXIS
     Route: 048
  12. PYDOXAL [Concomitant]
     Route: 048
  13. MUCOSTA [Concomitant]
     Indication: GASTRITIS
  14. PLAVIX [Concomitant]
     Indication: CARDIAC FAILURE
     Route: 048
  15. FOLIAMIN [Concomitant]
     Indication: ANAEMIA
     Route: 048

REACTIONS (4)
  - BRAIN STEM INFARCTION [None]
  - DIABETES INSIPIDUS [None]
  - HYPERNATRAEMIA [None]
  - INTERSTITIAL LUNG DISEASE [None]
